FAERS Safety Report 8481122-5 (Version None)
Quarter: 2012Q3

REPORT INFORMATION
  Report Type: 
  Country: None (occurrence: None)
  Receive Date: 20120702
  Receipt Date: 20120626
  Transmission Date: 20120928
  Serious: Yes (Other)
  Sender: FDA-Public Use
  Company Number: PHHY2012CA051818

PATIENT
  Sex: Female

DRUGS (7)
  1. CALCIUM [Concomitant]
     Dosage: 500 MG, UNK
  2. PULMICORT [Concomitant]
     Dosage: UNK UKN, UNK
  3. ZOLEDRONOC ACID [Suspect]
     Dosage: UNK UKN, UNK
     Route: 042
     Dates: start: 20110822
  4. ADVAIR DISKUS 100/50 [Concomitant]
     Dosage: 500 MG, UNK
  5. CETIRIZINE HCL [Concomitant]
     Dosage: UNK UKN, UNK
  6. ZOLEDRONOC ACID [Suspect]
     Indication: OSTEOPOROSIS
     Dosage: UNK UKN, UNK
     Route: 042
     Dates: start: 20100828
  7. VENTOLIN [Concomitant]
     Dosage: UNK UKN, UNK

REACTIONS (3)
  - PYREXIA [None]
  - NASOPHARYNGITIS [None]
  - BRONCHITIS [None]
